FAERS Safety Report 6041058-6 (Version None)
Quarter: 2009Q1

REPORT INFORMATION
  Report Type: 
  Country: None (occurrence: None)
  Receive Date: 20090116
  Receipt Date: 20080808
  Transmission Date: 20090719
  Serious: No
  Sender: FDA-Public Use
  Company Number: US-BRISTOL-MYERS SQUIBB COMPANY-14292197

PATIENT
  Sex: Female

DRUGS (1)
  1. ABILIFY [Suspect]
     Dosage: ABILIFY WAS DISCONTINUED AND SUBSEQENTLY STARTED ON LOWER DOSE

REACTIONS (5)
  - AGITATION [None]
  - ANGER [None]
  - APHASIA [None]
  - HOSTILITY [None]
  - REPETITIVE SPEECH [None]
